FAERS Safety Report 17555140 (Version 1)
Quarter: 2020Q1

REPORT INFORMATION
  Report Type: Spontaneous
  Country: US (occurrence: US)
  Receive Date: 20200309
  Receipt Date: 20200309
  Transmission Date: 20200409
  Serious: Yes (Disabling, Other)
  Sender: FDA-Public Use
  Company Number: None

PATIENT
  Age: 52 Year
  Sex: Male
  Weight: 88.45 kg

DRUGS (15)
  1. NUTRILITE-MENS PACK VITAMINS [Concomitant]
  2. HYDROMORPHONE HCL ER 16MG [Suspect]
     Active Substance: HYDROMORPHONE HYDROCHLORIDE
     Indication: PAIN MANAGEMENT
     Dosage: ?          QUANTITY:30 DF DOSAGE FORM;?
     Route: 048
  3. PROMETHAZINE [Concomitant]
     Active Substance: PROMETHAZINE HYDROCHLORIDE
  4. ANDEODERM DIS [Concomitant]
  5. OMEPRAZOLE. [Concomitant]
     Active Substance: OMEPRAZOLE
  6. HYDROMORPHONE IR 4MG [Suspect]
     Active Substance: HYDROMORPHONE
     Indication: PAIN MANAGEMENT
     Dosage: ?          QUANTITY:90 DF DOSAGE FORM;?
     Route: 048
  7. TESTOST CYP [Concomitant]
     Active Substance: TESTOSTERONE CYPIONATE
  8. RENOFIBRATE [Concomitant]
  9. GABAPENTIN. [Concomitant]
     Active Substance: GABAPENTIN
  10. NAPROXEN. [Concomitant]
     Active Substance: NAPROXEN
  11. LISINOPRIL. [Concomitant]
     Active Substance: LISINOPRIL
  12. DEXTROAMPHET SACCHARAT, AMPHET ASPARTATE, DEXTROAMPHET SULFATE AND AMPHET SULFAT [Suspect]
     Active Substance: AMPHETAMINE ASPARTATE\AMPHETAMINE SULFATE\DEXTROAMPHETAMINE SACCHARATE\DEXTROAMPHETAMINE SULFATE
     Indication: ATTENTION DEFICIT/HYPERACTIVITY DISORDER
     Dosage: ?          QUANTITY:60 DF DOSAGE FORM;?
     Route: 048
  13. LEVOTHYROXINE. [Concomitant]
     Active Substance: LEVOTHYROXINE
  14. TADALAFIL. [Concomitant]
     Active Substance: TADALAFIL
  15. TIZANIDINE. [Concomitant]
     Active Substance: TIZANIDINE

REACTIONS (2)
  - Malaise [None]
  - Suspected product tampering [None]
